FAERS Safety Report 9266489 (Version 2)
Quarter: 2013Q2

REPORT INFORMATION
  Report Type: Spontaneous
  Country: HU (occurrence: HU)
  Receive Date: 20130502
  Receipt Date: 20130529
  Transmission Date: 20140414
  Serious: Yes (Death, Hospitalization, Other)
  Sender: FDA-Public Use
  Company Number: HU-JNJFOC-20130417352

PATIENT
  Age: 84 Year
  Sex: Female

DRUGS (20)
  1. XARELTO [Suspect]
     Indication: PULMONARY EMBOLISM
     Route: 048
     Dates: start: 201304, end: 201304
  2. VINPOCETINE [Concomitant]
     Route: 065
  3. JUMEX [Concomitant]
     Route: 065
  4. MADOPAR [Concomitant]
     Route: 065
  5. OLICARD [Concomitant]
     Route: 065
  6. VIREGYT-K [Concomitant]
     Route: 065
  7. COVEREX [Concomitant]
     Route: 065
  8. LETROX [Concomitant]
     Route: 065
  9. XANAX [Concomitant]
     Route: 065
  10. ASPIRIN PROTECT [Concomitant]
     Route: 065
  11. THEOSPIREX [Concomitant]
     Route: 065
  12. PAXIRASOL [Concomitant]
     Route: 065
  13. TENSIOMIN [Concomitant]
     Route: 065
  14. CORDAFLEX [Concomitant]
     Route: 065
  15. PANTOPRAZOLE [Concomitant]
     Route: 065
  16. SYNCUMAR [Concomitant]
     Route: 065
  17. BERODUAL [Concomitant]
     Route: 065
  18. FRONTIN [Concomitant]
     Route: 065
  19. KALDYUM [Concomitant]
     Route: 065
  20. RESONIUM [Concomitant]
     Route: 065

REACTIONS (5)
  - Cardiopulmonary failure [Fatal]
  - Pulmonary embolism [Fatal]
  - Thrombosis mesenteric vessel [Not Recovered/Not Resolved]
  - Peripheral artery thrombosis [Not Recovered/Not Resolved]
  - Drug ineffective [Unknown]
